FAERS Safety Report 13352004 (Version 1)
Quarter: 2017Q1

REPORT INFORMATION
  Report Type: Spontaneous
  Country: US (occurrence: US)
  Receive Date: 20170320
  Receipt Date: 20170320
  Transmission Date: 20170429
  Serious: No
  Sender: FDA-Public Use
  Company Number: US-SA-2016SA059187

PATIENT
  Age: 77 Year
  Sex: Female

DRUGS (2)
  1. ZYRTEC [Concomitant]
     Active Substance: CETIRIZINE HYDROCHLORIDE
     Route: 065
  2. NASACORT ALLERGY 24HR [Suspect]
     Active Substance: TRIAMCINOLONE ACETONIDE
     Indication: HYPERSENSITIVITY
     Dosage: STOP DATE: AFTER 3 DAYS OF USE DOSE:1 PUFF(S)
     Route: 065

REACTIONS (2)
  - Sneezing [Recovered/Resolved]
  - Pruritus generalised [Recovered/Resolved]
